FAERS Safety Report 20691666 (Version 2)
Quarter: 2022Q2

REPORT INFORMATION
  Report Type: Report from Study
  Country: AT (occurrence: AT)
  Receive Date: 20220408
  Receipt Date: 20220422
  Transmission Date: 20220721
  Serious: Yes (Hospitalization)
  Sender: FDA-Public Use
  Company Number: AT-BRISTOL-MYERS SQUIBB COMPANY-2022-015841

PATIENT
  Age: 62 Year
  Sex: Male
  Weight: 105 kg

DRUGS (17)
  1. NIVOLUMAB [Suspect]
     Active Substance: NIVOLUMAB
     Indication: Prostate cancer
     Dosage: PRIOR TO EVENT ONSET RECEIVED 135.5 ML ON 22-MAR-2022
     Route: 042
     Dates: start: 20211222
  2. PREDNISONE [Suspect]
     Active Substance: PREDNISONE
     Indication: Prostate cancer
     Dosage: LAST DOSE 10-JAN-2022
     Dates: start: 20211222
  3. DOCETAXEL [Suspect]
     Active Substance: DOCETAXEL
     Indication: Prostate cancer
     Dosage: PRIOR TO EVENT ONSET RECEIVED ON 22-MAR-2022
     Route: 065
     Dates: start: 20211222
  4. CIPRALEX [Concomitant]
     Active Substance: ESCITALOPRAM OXALATE
     Indication: Product used for unknown indication
     Dosage: ONGOING
     Route: 048
     Dates: start: 2019
  5. XGEVA [Concomitant]
     Active Substance: DENOSUMAB
     Indication: Prophylaxis
     Dosage: ONGOING
     Route: 058
     Dates: start: 20190816
  6. HYDROMORPHONE HYDROCHLORIDE [Concomitant]
     Active Substance: HYDROMORPHONE HYDROCHLORIDE
     Indication: Product used for unknown indication
     Dosage: ONGOING
     Route: 048
     Dates: start: 202109
  7. PREDNISOLONE [Concomitant]
     Active Substance: PREDNISOLONE
     Indication: Product used for unknown indication
     Route: 048
     Dates: start: 20220222, end: 20220322
  8. PREDNISOLONE [Concomitant]
     Active Substance: PREDNISOLONE
     Route: 048
     Dates: start: 20220322, end: 20220412
  9. ONDANSETRON [Concomitant]
     Active Substance: ONDANSETRON
     Indication: Product used for unknown indication
     Route: 048
     Dates: start: 20220322, end: 20220322
  10. NEULASTA [Concomitant]
     Active Substance: PEGFILGRASTIM
     Indication: Prophylaxis
     Dosage: ONGOING
     Route: 058
     Dates: start: 20211224
  11. CALCIDURAN [ASCORBIC ACID;CALCIUM PHOSPHATE;CITRIC ACID;COLECALCIFEROL [Concomitant]
     Indication: Product used for unknown indication
     Dosage: ONGOING
     Route: 048
     Dates: start: 20190816
  12. AGLANDIN [DUTASTERIDE;TAMSULOSIN HYDROCHLORIDE] [Concomitant]
     Indication: Product used for unknown indication
     Dosage: ONGOING
     Route: 048
     Dates: start: 2019
  13. LISINOPRIL [Concomitant]
     Active Substance: LISINOPRIL
     Indication: Product used for unknown indication
     Dosage: ONGOING
     Route: 048
     Dates: start: 201907
  14. NOVALGIN (METAMIZOLE SODIUM) [Concomitant]
     Active Substance: METAMIZOLE SODIUM
     Indication: Product used for unknown indication
     Dosage: ONGOING
     Route: 048
     Dates: start: 2019
  15. DEXAMETHASONE [Concomitant]
     Active Substance: DEXAMETHASONE
     Indication: Product used for unknown indication
     Route: 048
     Dates: start: 20220321, end: 20220323
  16. DEXAMETHASONE [Concomitant]
     Active Substance: DEXAMETHASONE
     Indication: Product used for unknown indication
     Route: 048
     Dates: start: 20220322, end: 20220322
  17. CLAVAMOX [AMOXICILLIN SODIUM;CLAVULANATE POTASSIUM] [Concomitant]
     Indication: Urinary tract infection
     Dosage: 1 DOSAGE FORM=2 UNITS NOS
     Route: 048
     Dates: start: 20220314, end: 20220322

REACTIONS (1)
  - Urinary tract infection [Recovered/Resolved]

NARRATIVE: CASE EVENT DATE: 20220330
